FAERS Safety Report 5385702-5 (Version None)
Quarter: 2007Q3

REPORT INFORMATION
  Report Type: 
  Country: None (occurrence: None)
  Receive Date: 20070712
  Receipt Date: 20070702
  Transmission Date: 20080115
  Serious: Yes (Hospitalization, Other)
  Sender: FDA-Public Use
  Company Number: FR-GILEAD-2007-0012325

PATIENT
  Sex: Male
  Weight: 72.9 kg

DRUGS (8)
  1. TRUVADA [Suspect]
     Indication: HIV INFECTION
     Route: 048
     Dates: start: 20070411
  2. SUSTIVA [Suspect]
     Indication: HIV INFECTION
     Route: 048
     Dates: start: 20070411
  3. SUSTIVA [Suspect]
     Route: 048
     Dates: start: 20070611
  4. RIFATER [Suspect]
     Indication: TUBERCULOSIS
     Route: 048
     Dates: start: 20070327, end: 20070529
  5. BACTRIM [Suspect]
     Indication: ANTIFUNGAL PROPHYLAXIS
     Route: 048
     Dates: start: 20070323
  6. RIMIFON [Concomitant]
     Dates: start: 20070601
  7. PYRILENE [Concomitant]
     Indication: TUBERCULOSIS
     Dates: start: 20070601
  8. IZILOX [Concomitant]
     Indication: TUBERCULOSIS
     Dates: start: 20070601

REACTIONS (12)
  - ANAEMIA [None]
  - ASTHENIA [None]
  - CANDIDURIA [None]
  - CEREBROVASCULAR DISORDER [None]
  - FUNGUS STOOL IDENTIFIED [None]
  - HYPERBILIRUBINAEMIA [None]
  - HYPOALBUMINAEMIA [None]
  - IMMUNE RECONSTITUTION SYNDROME [None]
  - KAPOSI'S SARCOMA [None]
  - OEDEMA PERIPHERAL [None]
  - URINARY TRACT INFECTION BACTERIAL [None]
  - VENOUS THROMBOSIS [None]
